FAERS Safety Report 20689816 (Version 1)
Quarter: 2022Q2

REPORT INFORMATION
  Report Type: Spontaneous
  Country: CA (occurrence: None)
  Receive Date: 20220407
  Receipt Date: 20220407
  Transmission Date: 20220721
  Serious: Yes (Hospitalization)
  Sender: FDA-Public Use
  Company Number: None

PATIENT
  Age: 31 Year
  Sex: Male
  Weight: 81 kg

DRUGS (5)
  1. CLOZAPINE [Suspect]
     Active Substance: CLOZAPINE
     Indication: Hallucination
     Route: 048
  2. CLOZAPINE [Suspect]
     Active Substance: CLOZAPINE
     Indication: Psychotic symptom
  3. CLONAZEPAM [Concomitant]
     Active Substance: CLONAZEPAM
  4. OLANZAPINE [Concomitant]
     Active Substance: OLANZAPINE
  5. ZOPICLONE [Concomitant]
     Active Substance: ZOPICLONE

REACTIONS (7)
  - Muscle twitching [None]
  - Muscle spasms [None]
  - Aggression [None]
  - Haemorrhage [None]
  - Sensory disturbance [None]
  - Suicide attempt [None]
  - Hallucination [None]

NARRATIVE: CASE EVENT DATE: 20200610
